FAERS Safety Report 11656447 (Version 2)
Quarter: 2015Q4

REPORT INFORMATION
  Report Type: Report from Study
  Country: DE (occurrence: DE)
  Receive Date: 20151023
  Receipt Date: 20151111
  Transmission Date: 20160304
  Serious: Yes (Hospitalization, Other)
  Sender: FDA-Public Use
  Company Number: DE-BAXALTA-2015BLT002252

PATIENT
  Age: 51 Year
  Sex: Male

DRUGS (5)
  1. LEVETIRACETAM. [Concomitant]
     Active Substance: LEVETIRACETAM
     Indication: EPILEPSY
     Route: 065
  2. ADVATE [Suspect]
     Active Substance: ANTIHEMOPHILIC FACTOR, HUMAN RECOMBINANT
     Dosage: 2000 IU, 3X A WEEK
     Route: 042
     Dates: start: 20150914, end: 20150916
  3. LEVOTHYROXINE. [Concomitant]
     Active Substance: LEVOTHYROXINE
     Indication: PRODUCT USED FOR UNKNOWN INDICATION
     Dosage: 50 ?G, 1/0/0
     Route: 065
  4. INSULINE HUMAINE [Concomitant]
     Indication: TYPE 2 DIABETES MELLITUS
     Dosage: PATIENT SCHEDULE
     Route: 065
  5. ADVATE [Suspect]
     Active Substance: ANTIHEMOPHILIC FACTOR, HUMAN RECOMBINANT
     Indication: FACTOR VIII DEFICIENCY
     Dosage: 2000 IU, 3X A WEEK
     Route: 042

REACTIONS (6)
  - Loss of consciousness [Recovered/Resolved]
  - Muscle haemorrhage [Unknown]
  - Fall [Recovered/Resolved]
  - Oedema peripheral [Unknown]
  - Oedema [Unknown]
  - Haematoma [Recovering/Resolving]

NARRATIVE: CASE EVENT DATE: 20150916
